FAERS Safety Report 21755892 (Version 2)
Quarter: 2023Q1

REPORT INFORMATION
  Report Type: 
  Country: None (occurrence: None)
  Receive Date: 20221220
  Receipt Date: 20230124
  Transmission Date: 20230417
  Serious: No
  Sender: FDA-Public Use
  Company Number: None

PATIENT
  Age: 46 Year
  Sex: Male

DRUGS (1)
  1. VALPROIC ACID [Suspect]
     Active Substance: VALPROIC ACID

REACTIONS (4)
  - Seizure [Recovered/Resolved]
  - Change in seizure presentation [Not Recovered/Not Resolved]
  - Gingival hypertrophy [Unknown]
  - Rash [Unknown]
